FAERS Safety Report 20977605 (Version 9)
Quarter: 2024Q3

REPORT INFORMATION
  Report Type: Spontaneous
  Country: US (occurrence: US)
  Receive Date: 20220618
  Receipt Date: 20240912
  Transmission Date: 20241017
  Serious: Yes (Other)
  Sender: BRISTOL MYERS SQUIBB
  Company Number: US-BRISTOL-MYERS SQUIBB COMPANY-2022-056288

PATIENT
  Age: 74 Year
  Sex: Male

DRUGS (5)
  1. REVLIMID [Suspect]
     Active Substance: LENALIDOMIDE
     Indication: Plasma cell myeloma
     Route: 048
     Dates: start: 20220425
  2. REVLIMID [Suspect]
     Active Substance: LENALIDOMIDE
     Indication: Plasma cell myeloma in remission
     Dosage: TAKE 1 CAPSULE BY MOUTH DAILY FOR 14 DAYS FOLLOWED BY 7 DAYS OFF FOR A 21 DAY CYCLE
     Route: 048
     Dates: start: 20220425
  3. REVLIMID [Suspect]
     Active Substance: LENALIDOMIDE
     Dosage: TAKE 1 CAPSULE BY MOUTH ONCE DAILY. TAKE WITHOUT BREAKS FOR A 28-DAY CYCLE.
     Route: 048
  4. REVLIMID [Suspect]
     Active Substance: LENALIDOMIDE
     Route: 048
     Dates: start: 20240105
  5. REVLIMID [Suspect]
     Active Substance: LENALIDOMIDE
     Dosage: FREQUENCY: TAKE 1 CAPSULE (10MG) BY MOUTH EVERY DAY IN THE AFTERNOON, WITH NO BREAKS, FOR A 28-DAY C
     Route: 048

REACTIONS (14)
  - Back pain [Unknown]
  - Off label use [Unknown]
  - Diarrhoea [Not Recovered/Not Resolved]
  - Nasopharyngitis [Not Recovered/Not Resolved]
  - Product dose omission issue [Unknown]
  - Libido decreased [Not Recovered/Not Resolved]
  - Thrombosis [Not Recovered/Not Resolved]
  - Cough [Recovering/Resolving]
  - Decreased appetite [Not Recovered/Not Resolved]
  - Asthenia [Not Recovered/Not Resolved]
  - Arthropathy [Not Recovered/Not Resolved]
  - Constipation [Unknown]
  - Paranasal sinus hypersecretion [Recovering/Resolving]
  - Seasonal allergy [Recovering/Resolving]
